FAERS Safety Report 7639289-4 (Version None)
Quarter: 2011Q3

REPORT INFORMATION
  Report Type: 
  Country: None (occurrence: None)
  Receive Date: 20110727
  Receipt Date: 20110720
  Transmission Date: 20111222
  Serious: Yes (Disabling)
  Sender: FDA-Public Use
  Company Number: US-MERCK-1107USA02615

PATIENT
  Sex: Female

DRUGS (1)
  1. PRINIVIL [Suspect]
     Route: 048
     Dates: end: 20110701

REACTIONS (4)
  - NERVOUSNESS [None]
  - DISABILITY [None]
  - TREMOR [None]
  - NERVOUS SYSTEM DISORDER [None]
